FAERS Safety Report 25832206 (Version 1)
Quarter: 2025Q3

REPORT INFORMATION
  Report Type: Spontaneous
  Country: US (occurrence: None)
  Receive Date: 20250919
  Receipt Date: 20250919
  Transmission Date: 20251020
  Serious: No
  Sender: FDA-CTU
  Company Number: None

PATIENT
  Age: 44 Year
  Sex: Female

DRUGS (3)
  1. WINREVAIR [Suspect]
     Active Substance: SOTATERCEPT-CSRK
     Indication: Pulmonary arterial hypertension
     Route: 058
     Dates: start: 20250127
  2. ADEMPAS [Concomitant]
     Active Substance: RIOCIGUAT
  3. TYVASO DPI MNT KIT PWD (PAP) [Concomitant]

REACTIONS (1)
  - Cardiogenic shock [None]

NARRATIVE: CASE EVENT DATE: 20250703
